FAERS Safety Report 10069018 (Version 1)
Quarter: 2014Q2

REPORT INFORMATION
  Report Type: Spontaneous
  Country: US (occurrence: US)
  Receive Date: 20140409
  Receipt Date: 20140409
  Transmission Date: 20141212
  Serious: Yes (Other)
  Sender: FDA-Public Use
  Company Number: US-ACTAVIS-2014-06768

PATIENT
  Age: 12 Year
  Sex: Female

DRUGS (4)
  1. ARIPIPRAZOLE (UNKNOWN) [Suspect]
     Indication: SCHIZOPHRENIA, PARANOID TYPE
     Dosage: UNK
     Route: 065
  2. RISPERIDONE (WATSON LABORATORIES) [Suspect]
     Indication: SCHIZOPHRENIA, PARANOID TYPE
     Dosage: UNK
     Route: 065
  3. PERPHENAZINE [Suspect]
     Indication: SCHIZOPHRENIA, PARANOID TYPE
     Dosage: UNK
     Route: 065
  4. THORAZINE                          /00011901/ [Suspect]
     Indication: SCHIZOPHRENIA, PARANOID TYPE
     Dosage: UNK
     Route: 065

REACTIONS (2)
  - Dyskinesia [Unknown]
  - Drug ineffective [Unknown]
